FAERS Safety Report 5109966-8 (Version None)
Quarter: 2006Q3

REPORT INFORMATION
  Report Type: 
  Country: None (occurrence: None)
  Receive Date: 20060921
  Receipt Date: 20060912
  Transmission Date: 20061208
  Serious: Yes (Other)
  Sender: FDA-Public Use
  Company Number: RU-JNJFOC-20060902412

PATIENT
  Age: 73 Year
  Sex: Female

DRUGS (4)
  1. TAVANIC [Suspect]
     Route: 042
  2. TAVANIC [Suspect]
     Route: 042
  3. TAVANIC [Suspect]
     Indication: PNEUMONIA
     Route: 042
  4. TAVANIC [Suspect]
     Route: 048
     Dates: start: 20060827, end: 20060830

REACTIONS (3)
  - COORDINATION ABNORMAL [None]
  - OPHTHALMOPLEGIA [None]
  - VOMITING [None]
